FAERS Safety Report 7996986-9 (Version None)
Quarter: 2011Q4

REPORT INFORMATION
  Report Type: 
  Country: None (occurrence: None)
  Receive Date: 20111221
  Receipt Date: 20111214
  Transmission Date: 20120403
  Serious: Yes (Death, Hospitalization)
  Sender: FDA-Public Use
  Company Number: PHEH2011US011161

PATIENT
  Sex: Male
  Weight: 63.039 kg

DRUGS (10)
  1. DILTIAZEM HCL [Concomitant]
     Dosage: UNK UKN, UNK
     Route: 065
  2. ARIXTRA [Concomitant]
     Dosage: UNK UKN, UNK
     Route: 065
  3. SANDOSTATIN LAR [Suspect]
     Dosage: 20 MG, QMO
     Route: 030
  4. CHEMOTHERAPEUTICS [Concomitant]
     Indication: PROSTATE CANCER
     Dosage: UNK UKN, UNK
     Route: 065
  5. AFINITOR [Suspect]
     Dosage: UNK UKN, UNK
     Route: 065
  6. FENTANYL [Concomitant]
     Dosage: UNK UKN, UNK
     Route: 065
  7. ZYTIGA [Concomitant]
     Dosage: UNK UKN, UNK
     Route: 065
  8. RADIATION THERAPY [Concomitant]
     Indication: PROSTATE CANCER
     Dosage: UNK UKN, UNK
     Route: 065
  9. AMLODIPINE [Concomitant]
     Dosage: UNK UKN, UNK
     Route: 065
  10. COMPAZINE [Concomitant]
     Indication: NAUSEA
     Dosage: UNK UKN, UNK
     Route: 065

REACTIONS (12)
  - BLOOD PRESSURE DECREASED [None]
  - DEATH [None]
  - RESPIRATORY FAILURE [None]
  - BREATH SOUNDS ABSENT [None]
  - TACHYCARDIA [None]
  - LYMPHADENOPATHY [None]
  - OEDEMA PERIPHERAL [None]
  - BREATH SOUNDS ABNORMAL [None]
  - NEOPLASM MALIGNANT [None]
  - UNRESPONSIVE TO STIMULI [None]
  - DYSPNOEA [None]
  - NEOPLASM PROGRESSION [None]
